FAERS Safety Report 17354733 (Version 5)
Quarter: 2020Q1

REPORT INFORMATION
  Report Type: Spontaneous
  Country: GB (occurrence: GB)
  Receive Date: 20200131
  Receipt Date: 20200227
  Transmission Date: 20200409
  Serious: Yes (Other)
  Sender: FDA-Public Use
  Company Number: GB-009507513-2001GBR010707

PATIENT
  Sex: Female

DRUGS (1)
  1. MOMETASONE FUROATE. [Suspect]
     Active Substance: MOMETASONE FUROATE
     Indication: PRODUCT USED FOR UNKNOWN INDICATION
     Dosage: UNK

REACTIONS (8)
  - Skin burning sensation [Unknown]
  - Skin exfoliation [Unknown]
  - Anxiety [Unknown]
  - Adrenal disorder [Unknown]
  - Anal haemorrhage [Unknown]
  - Neuralgia [Unknown]
  - Post-traumatic stress disorder [Unknown]
  - Alopecia [Unknown]
